FAERS Safety Report 8005944-X (Version None)
Quarter: 2011Q4

REPORT INFORMATION
  Report Type: 
  Country: None (occurrence: None)
  Receive Date: 20111223
  Receipt Date: 20111215
  Transmission Date: 20120403
  Serious: Yes (Disabling)
  Sender: FDA-Public Use
  Company Number: JP-ASTRAZENECA-2011SE75620

PATIENT
  Age: 70 Year
  Sex: Male

DRUGS (1)
  1. OMEPRAZOLE [Suspect]
     Dosage: DOSE UNKNOWN
     Route: 048

REACTIONS (1)
  - EOSINOPHIL COUNT INCREASED [None]
